FAERS Safety Report 24548760 (Version 1)
Quarter: 2024Q4

REPORT INFORMATION
  Report Type: Report from Study
  Country: DE (occurrence: DE)
  Receive Date: 20241025
  Receipt Date: 20241025
  Transmission Date: 20250114
  Serious: Yes (Hospitalization)
  Sender: ROCHE
  Company Number: DE-ROCHE-10000115431

PATIENT
  Age: 41 Week
  Sex: Male
  Weight: 3.57 kg

DRUGS (10)
  1. OCRELIZUMAB [Suspect]
     Active Substance: OCRELIZUMAB
     Indication: Product used for unknown indication
     Route: 064
     Dates: start: 20210728, end: 20210728
  2. OCRELIZUMAB [Suspect]
     Active Substance: OCRELIZUMAB
     Route: 064
     Dates: start: 20220627
  3. CORTISONE [Concomitant]
     Active Substance: CORTISONE
     Indication: Multiple sclerosis
     Dates: start: 20210607, end: 20210609
  4. CORTISONE [Concomitant]
     Active Substance: CORTISONE
     Dates: start: 20210728, end: 20210728
  5. PREGABALIN [Concomitant]
     Active Substance: PREGABALIN
     Indication: Multiple sclerosis
     Dates: start: 20210515, end: 20210601
  6. SODIUM PROPIONATE [Concomitant]
     Active Substance: SODIUM PROPIONATE
     Dates: start: 201904
  7. FOLIC ACID [Concomitant]
     Active Substance: FOLIC ACID
     Dates: start: 2020, end: 20211027
  8. LEVOTHYROXINE SODIUM [Concomitant]
     Active Substance: LEVOTHYROXINE SODIUM
     Dates: start: 20210902
  9. DIMETHINDENE [Concomitant]
     Active Substance: DIMETHINDENE
     Dates: start: 20210728, end: 20210728
  10. ACETAMINOPHEN [Concomitant]
     Active Substance: ACETAMINOPHEN
     Dates: start: 20210728, end: 20210728

REACTIONS (2)
  - COVID-19 [Recovered/Resolved]
  - Foetal exposure during pregnancy [Unknown]

NARRATIVE: CASE EVENT DATE: 20230307
